FAERS Safety Report 8464489-3 (Version None)
Quarter: 2012Q2

REPORT INFORMATION
  Report Type: 
  Country: None (occurrence: None)
  Receive Date: 20120626
  Receipt Date: 20120615
  Transmission Date: 20120825
  Serious: Yes (Other)
  Sender: FDA-Public Use
  Company Number: US-BRISTOL-MYERS SQUIBB COMPANY-16689192

PATIENT
  Age: 69 Year
  Sex: Female
  Weight: 89 kg

DRUGS (1)
  1. ORENCIA [Suspect]
     Indication: RHEUMATOID ARTHRITIS
     Dosage: STARTED A YEAR AGO.SCHEDULED FOR NEXT INF AT 8AM ON 18JUN2012
     Route: 042

REACTIONS (2)
  - LACERATION [None]
  - EAR DISORDER [None]
